FAERS Safety Report 14813120 (Version 1)
Quarter: 2018Q2

REPORT INFORMATION
  Report Type: Spontaneous
  Country: FR (occurrence: FR)
  Receive Date: 20180426
  Receipt Date: 20180426
  Transmission Date: 20180711
  Serious: Yes (Other)
  Sender: FDA-Public Use
  Company Number: FR-MERCK KGAA-2046554

PATIENT
  Sex: Female

DRUGS (1)
  1. NOVOTHYROX [Suspect]
     Active Substance: LEVOTHYROXINE SODIUM
     Indication: HYPOTHYROIDISM

REACTIONS (30)
  - Constipation [None]
  - Presyncope [None]
  - Disturbance in attention [None]
  - Aphasia [None]
  - Somnolence [None]
  - Personal relationship issue [None]
  - Depression [None]
  - Abdominal pain [None]
  - Decreased appetite [None]
  - Myalgia [None]
  - Asthenia [None]
  - Memory impairment [None]
  - Irritability [None]
  - Apathy [None]
  - Palpitations [None]
  - Insomnia [None]
  - Anxiety [None]
  - Nervousness [None]
  - Slow speech [None]
  - Dependent personality disorder [None]
  - Hyperthyroidism [None]
  - Gastrointestinal disorder [None]
  - Nausea [None]
  - Migraine [None]
  - Tinnitus [None]
  - Affect lability [None]
  - Diarrhoea [None]
  - Arthralgia [None]
  - Fatigue [None]
  - Lethargy [None]
